FAERS Safety Report 6291999-X (Version None)
Quarter: 2009Q3

REPORT INFORMATION
  Report Type: 
  Country: None (occurrence: None)
  Receive Date: 20090729
  Receipt Date: 20090717
  Transmission Date: 20100115
  Serious: Yes (Hospitalization)
  Sender: FDA-Public Use
  Company Number: 8049115

PATIENT
  Age: 46 Year
  Sex: Male

DRUGS (5)
  1. KEPPRA [Suspect]
     Indication: CONVULSION PROPHYLAXIS
     Dates: start: 20090601, end: 20090701
  2. FLAGYL [Suspect]
     Dates: start: 20090611, end: 20090629
  3. VANCOMYCIN [Suspect]
     Dates: start: 20090601, end: 20090701
  4. ROCEPHIN [Suspect]
     Dates: start: 20090601, end: 20090629
  5. MEROPENEM [Concomitant]

REACTIONS (17)
  - ACTIVATED PARTIAL THROMBOPLASTIN TIME PROLONGED [None]
  - BACTERIAL INFECTION [None]
  - BLOOD BILIRUBIN INCREASED [None]
  - CENTRAL NERVOUS SYSTEM INFECTION [None]
  - CHILLS [None]
  - CULTURE WOUND POSITIVE [None]
  - DRUG RASH WITH EOSINOPHILIA AND SYSTEMIC SYMPTOMS [None]
  - HYPONATRAEMIA [None]
  - IMPAIRED HEALING [None]
  - INTERNATIONAL NORMALISED RATIO INCREASED [None]
  - MENINGITIS [None]
  - POSTOPERATIVE WOUND INFECTION [None]
  - PROTHROMBIN TIME PROLONGED [None]
  - PYREXIA [None]
  - RASH [None]
  - TRANSAMINASES INCREASED [None]
  - WOUND DRAINAGE [None]
